FAERS Safety Report 4718436-8 (Version None)
Quarter: 2005Q3

REPORT INFORMATION
  Report Type: 
  Country: None (occurrence: None)
  Receive Date: 20050720
  Receipt Date: 20050428
  Transmission Date: 20060218
  Serious: Yes (Other)
  Sender: FDA-Public Use
  Company Number: PHBS2005JP06095

PATIENT
  Weight: 50 kg

DRUGS (1)
  1. SANDIMMUNE [Suspect]
     Indication: INTERSTITIAL LUNG DISEASE
     Dosage: 50 MG, BID
     Route: 065

REACTIONS (1)
  - HALLUCINATION [None]
